FAERS Safety Report 7215275-3 (Version None)
Quarter: 2011Q1

REPORT INFORMATION
  Report Type: 
  Country: None (occurrence: None)
  Receive Date: 20110107
  Receipt Date: 20101230
  Transmission Date: 20110831
  Serious: Yes (Hospitalization, Other)
  Sender: FDA-Public Use
  Company Number: PHHY2010FR85982

PATIENT
  Sex: Female

DRUGS (10)
  1. LOXEN [Suspect]
     Indication: HYPERTENSION
     Dosage: 50 MG, BID
     Route: 048
     Dates: start: 20100421
  2. ATACAND [Concomitant]
     Indication: HYPERTENSION
     Dosage: 16 MG DAILY
  3. ATACAND [Concomitant]
     Dosage: 32 MG DAILY DURING THE HOSPITALIZATION
  4. HUMALOG [Concomitant]
     Indication: DIABETES MELLITUS
     Dosage: UNK
     Dates: start: 20100428
  5. LEVEMIR [Concomitant]
     Indication: TYPE 1 DIABETES MELLITUS
     Dosage: 32 IU DAILY
     Dates: start: 20100421, end: 20100428
  6. NOVORAPID [Concomitant]
     Indication: DIABETES MELLITUS
     Dosage: UNK
  7. RASILEZ [Suspect]
     Indication: HYPERTENSION
     Dosage: 1 DF, QD
     Route: 048
     Dates: start: 20100421, end: 20100428
  8. HYPERIUM [Concomitant]
     Indication: HYPERTENSION
     Dosage: 2 DF, QD
  9. LANTUS [Concomitant]
     Indication: DIABETES MELLITUS
     Dosage: UNK
     Dates: start: 20100421
  10. BISOPROLOL [Concomitant]
     Dosage: UNK

REACTIONS (3)
  - BLOOD CREATINE INCREASED [None]
  - CREATININE RENAL CLEARANCE DECREASED [None]
  - RENAL IMPAIRMENT [None]
